FAERS Safety Report 5642931-0 (Version None)
Quarter: 2008Q1

REPORT INFORMATION
  Report Type: 
  Country: None (occurrence: None)
  Receive Date: 20080227
  Receipt Date: 20080227
  Transmission Date: 20080703
  Serious: Yes (Other)
  Sender: FDA-Public Use
  Company Number: None

PATIENT
  Sex: Female
  Weight: 70.3075 kg

DRUGS (3)
  1. LEVAQUIN [Suspect]
     Indication: HELICOBACTER INFECTION
     Dosage: 2X PER DAY
     Dates: start: 20061127, end: 20071210
  2. LEVAQUIN [Suspect]
     Indication: ULCER
     Dosage: 2X PER DAY
     Dates: start: 20061127, end: 20071210
  3. LEVAQUIN [Suspect]
     Indication: STAPHYLOCOCCAL SKIN INFECTION
     Dosage: 1X PER DAY
     Dates: start: 20080115, end: 20080125

REACTIONS (7)
  - JOINT INJURY [None]
  - MOBILITY DECREASED [None]
  - MUSCLE STRAIN [None]
  - PAIN [None]
  - SLEEP DISORDER [None]
  - STAPHYLOCOCCAL INFECTION [None]
  - TENDONITIS [None]
